FAERS Safety Report 5404366-5 (Version None)
Quarter: 2007Q3

REPORT INFORMATION
  Report Type: 
  Country: None (occurrence: None)
  Receive Date: 20070802
  Receipt Date: 20070726
  Transmission Date: 20080115
  Serious: Yes (Hospitalization)
  Sender: FDA-Public Use
  Company Number: JP-ASTRAZENECA-2007AP03938

PATIENT
  Age: 14090 Day
  Sex: Male
  Weight: 50 kg

DRUGS (1)
  1. NAROPIN [Suspect]
     Indication: PAIN MANAGEMENT
     Route: 008
     Dates: start: 20070525, end: 20070528

REACTIONS (1)
  - DRUG HYPERSENSITIVITY [None]
